FAERS Safety Report 18152462 (Version 1)
Quarter: 2020Q3

REPORT INFORMATION
  Report Type: Spontaneous
  Country: CN (occurrence: CN)
  Receive Date: 20200814
  Receipt Date: 20200814
  Transmission Date: 20201103
  Serious: Yes (Life-Threatening, Other)
  Sender: FDA-Public Use
  Company Number: CN-SHIRE-CN202025943

PATIENT

DRUGS (1)
  1. HUMAN ALBUMIN [Suspect]
     Active Substance: ALBUMIN HUMAN
     Indication: HYPOPROTEINAEMIA
     Dosage: 20 GRAM, 1X/DAY:QD
     Route: 042
     Dates: start: 20200620, end: 20200620

REACTIONS (7)
  - Infusion related reaction [Recovered/Resolved]
  - Dyspnoea [Recovered/Resolved]
  - Livedo reticularis [Recovered/Resolved]
  - Chills [Recovered/Resolved]
  - Blood pressure increased [Recovered/Resolved]
  - Heart rate increased [Recovered/Resolved]
  - Anaphylactic shock [Recovered/Resolved]

NARRATIVE: CASE EVENT DATE: 20200620
